FAERS Safety Report 16222583 (Version 1)
Quarter: 2019Q2

REPORT INFORMATION
  Report Type: Spontaneous
  Country: US (occurrence: US)
  Receive Date: 20190419
  Receipt Date: 20190419
  Transmission Date: 20190711
  Serious: Yes (Death)
  Sender: FDA-Public Use
  Company Number: None

PATIENT

DRUGS (15)
  1. FENOFIBRATE. [Concomitant]
     Active Substance: FENOFIBRATE
  2. LIVALO [Concomitant]
     Active Substance: PITAVASTATIN CALCIUM
  3. SOTALOL HCL [Concomitant]
     Active Substance: SOTALOL
  4. TRADJENTA [Concomitant]
     Active Substance: LINAGLIPTIN
  5. ZOLPIDEM TARTRATE. [Concomitant]
     Active Substance: ZOLPIDEM TARTRATE
  6. SPIRONOLACTONE. [Concomitant]
     Active Substance: SPIRONOLACTONE
  7. TRESIBA [Concomitant]
     Active Substance: INSULIN DEGLUDEC
  8. REPATHA [Suspect]
     Active Substance: EVOLOCUMAB
     Indication: ARTERIOSCLEROSIS
     Dosage: ?          OTHER FREQUENCY:EVERY 2 WEEKS;?
     Route: 058
  9. ELIQUIS [Concomitant]
     Active Substance: APIXABAN
  10. TORSEMIDE. [Concomitant]
     Active Substance: TORSEMIDE
  11. VASCEPA [Concomitant]
     Active Substance: ICOSAPENT ETHYL
  12. CARVEDILOL. [Concomitant]
     Active Substance: CARVEDILOL
  13. FLUZONE QUADRIVALENT 2017 [Concomitant]
  14. FUROSEMIDE. [Concomitant]
     Active Substance: FUROSEMIDE
  15. LOSARTAN POTASSIUM. [Concomitant]
     Active Substance: LOSARTAN POTASSIUM

REACTIONS (1)
  - Death [None]
